FAERS Safety Report 14183592 (Version 1)
Quarter: 2017Q4

REPORT INFORMATION
  Report Type: Spontaneous
  Country: JP (occurrence: JP)
  Receive Date: 20171113
  Receipt Date: 20171113
  Transmission Date: 20180321
  Serious: Yes (Hospitalization, Other)
  Sender: FDA-Public Use
  Company Number: JP-ROCHE-2023244

PATIENT
  Age: 84 Year
  Sex: Female

DRUGS (1)
  1. BONVIVA [Suspect]
     Active Substance: IBANDRONATE SODIUM
     Indication: OSTEOPOROSIS
     Route: 042
     Dates: start: 2016, end: 20171003

REACTIONS (3)
  - Femur fracture [Unknown]
  - Fall [Unknown]
  - Bronchitis [Unknown]

NARRATIVE: CASE EVENT DATE: 2017
